FAERS Safety Report 21875992 (Version 2)
Quarter: 2023Q1

REPORT INFORMATION
  Report Type: Spontaneous
  Country: NL (occurrence: NL)
  Receive Date: 20230118
  Receipt Date: 20230209
  Transmission Date: 20230418
  Serious: Yes (Life-Threatening, Hospitalization)
  Sender: FDA-Public Use
  Company Number: NL-TEVA-2023-NL-2846828

PATIENT
  Age: 32 Year
  Sex: Female

DRUGS (5)
  1. DOXORUBICIN [Suspect]
     Active Substance: DOXORUBICIN
     Indication: Osteosarcoma
     Dosage: MAP REGIMEN; 2 CYCLE FOLLOWED BY 4 CYCLES AS NEOADJUVANT SYSTEMIC THERAPY; THE CUMULATIVE DOSE OF...
     Route: 065
  2. LOSARTAN [Concomitant]
     Active Substance: LOSARTAN
     Indication: Hypotension
     Dosage: 25 MILLIGRAM DAILY;
     Route: 065
  3. PHENPROCOUMON [Concomitant]
     Active Substance: PHENPROCOUMON
     Indication: Thrombosis
     Route: 065
  4. METHOTREXATE [Concomitant]
     Active Substance: METHOTREXATE
     Indication: Osteosarcoma
     Dosage: MAP REGIMEN; 2 CYCLE FOLLOWED BY 4 CYCLES AS NEOADJUVANT SYSTEMIC THERAPY
     Route: 065
  5. CISPLATIN [Concomitant]
     Active Substance: CISPLATIN
     Indication: Osteosarcoma
     Dosage: MAP REGIMEN; 2 CYCLE FOLLOWED BY 4 CYCLES AS NEOADJUVANT SYSTEMIC THERAPY
     Route: 065

REACTIONS (6)
  - Cardiotoxicity [Recovered/Resolved]
  - Cardiac failure [Recovered/Resolved]
  - Cardiogenic shock [Recovered/Resolved]
  - Organ failure [Recovered/Resolved]
  - Lactic acidosis [Recovered/Resolved]
  - Cardiac tamponade [Recovered/Resolved]
